FAERS Safety Report 21380737 (Version 2)
Quarter: 2022Q4

REPORT INFORMATION
  Report Type: Report from Study
  Country: US (occurrence: US)
  Receive Date: 20220927
  Receipt Date: 20221006
  Transmission Date: 20230113
  Serious: Yes (Death)
  Sender: FDA-Public Use
  Company Number: US-PARATEK PHARMACEUTICALS, INC.-2022PTK00294

PATIENT
  Age: 65 Year
  Sex: Male
  Weight: 71.202 kg

DRUGS (2)
  1. NUZYRA [Suspect]
     Active Substance: OMADACYCLINE
     Indication: Skin infection
     Dosage: 450 MG, 1X/DAY CRUSHED UP AND PUT THROUGH HIS FEEDING TUBE
     Dates: start: 20220902, end: 20220903
  2. NUZYRA [Suspect]
     Active Substance: OMADACYCLINE
     Indication: Decubitus ulcer
     Dosage: 300 MG, 1X/DAY CRUSHED UP AND PUT THROUGH HIS FEEDING TUBE
     Dates: start: 20220904

REACTIONS (8)
  - Death [Fatal]
  - Melaena [Not Recovered/Not Resolved]
  - Blood urine present [Not Recovered/Not Resolved]
  - Pollakiuria [Unknown]
  - Blood glucose increased [Unknown]
  - Nausea [Recovered/Resolved]
  - Vomiting [Unknown]
  - Off label use [Recovered/Resolved]

NARRATIVE: CASE EVENT DATE: 20220902
